FAERS Safety Report 17196958 (Version 1)
Quarter: 2019Q4

REPORT INFORMATION
  Report Type: Spontaneous
  Country: US (occurrence: US)
  Receive Date: 20191224
  Receipt Date: 20191224
  Transmission Date: 20200122
  Serious: No
  Sender: FDA-Public Use
  Company Number: US-SA-2019SA348741

PATIENT
  Sex: Female

DRUGS (1)
  1. DULCOLAX (BISACODYL) [Suspect]
     Active Substance: BISACODYL
     Dosage: 2 DF
     Dates: start: 20191212

REACTIONS (3)
  - Pain [Unknown]
  - Surgery [Unknown]
  - Flatulence [Unknown]

NARRATIVE: CASE EVENT DATE: 20191212
